FAERS Safety Report 5730478-2 (Version None)
Quarter: 2008Q2

REPORT INFORMATION
  Report Type: 
  Country: None (occurrence: None)
  Receive Date: 20080507
  Receipt Date: 20080425
  Transmission Date: 20081010
  Serious: Yes (Hospitalization)
  Sender: FDA-Public Use
  Company Number: US-JNJFOC-20080406791

PATIENT
  Sex: Male
  Weight: 89.36 kg

DRUGS (9)
  1. DURAGESIC-100 [Suspect]
     Indication: PAIN
     Route: 062
  2. TRICOR [Concomitant]
     Indication: BLOOD CHOLESTEROL
     Route: 048
  3. LASIX [Concomitant]
     Indication: CARDIAC DISORDER
     Route: 048
  4. LISINOPRIL [Concomitant]
     Indication: CARDIAC DISORDER
     Route: 048
  5. ARICEPT [Concomitant]
     Indication: DEMENTIA ALZHEIMER'S TYPE
     Route: 048
  6. HUMALOG [Concomitant]
     Indication: DIABETES MELLITUS
     Dosage: 40 UNITS
     Route: 058
  7. LANTUS [Concomitant]
     Indication: DIABETES MELLITUS
     Route: 058
  8. FOLTX [Concomitant]
     Indication: VITAMIN SUPPLEMENTATION
  9. DIGOXIN [Concomitant]
     Indication: CARDIAC DISORDER
     Route: 048

REACTIONS (3)
  - BLOOD MAGNESIUM DECREASED [None]
  - DECUBITUS ULCER [None]
  - PACEMAKER COMPLICATION [None]
